FAERS Safety Report 17273614 (Version 2)
Quarter: 2020Q1

REPORT INFORMATION
  Report Type: Spontaneous
  Country: CN (occurrence: CN)
  Receive Date: 20200115
  Receipt Date: 20200116
  Transmission Date: 20200409
  Serious: Yes (Life-Threatening, Hospitalization, Other)
  Sender: FDA-Public Use
  Company Number: CN-PFIZER INC-2020014441

PATIENT
  Age: 40 Year
  Sex: Female
  Weight: 46 kg

DRUGS (1)
  1. LIPITOR [Suspect]
     Active Substance: ATORVASTATIN CALCIUM
     Indication: PLAQUE SHIFT
     Dosage: 40 MG, 1X/DAY
     Route: 045
     Dates: start: 20191015, end: 2019

REACTIONS (4)
  - Polyneuropathy [Recovering/Resolving]
  - Rhabdomyolysis [Recovering/Resolving]
  - Product use issue [Unknown]
  - Off label use [Unknown]

NARRATIVE: CASE EVENT DATE: 20191015
